FAERS Safety Report 18523285 (Version 2)
Quarter: 2020Q4

REPORT INFORMATION
  Report Type: Spontaneous
  Country: US (occurrence: US)
  Receive Date: 20201119
  Receipt Date: 20201207
  Transmission Date: 20210114
  Serious: Yes (Other)
  Sender: FDA-Public Use
  Company Number: US-PFIZER INC-2020452586

PATIENT
  Age: 60 Year
  Sex: Female
  Weight: 34.6 kg

DRUGS (4)
  1. NAPROXEN. [Concomitant]
     Active Substance: NAPROXEN
     Indication: RHEUMATOID ARTHRITIS
     Dosage: 250 MG BID (TWICE A DAY) PRN (AS NEEDED)]
  2. HYDROXYCHLOROQUINE [Concomitant]
     Active Substance: HYDROXYCHLOROQUINE
     Indication: RHEUMATOID ARTHRITIS
     Dosage: PRIOR DOSE QOD (EVERY OTHER DAY) 300 MG/ALT 200 MG
     Dates: start: 201712, end: 201712
  3. METHOTREXATE SODIUM. [Suspect]
     Active Substance: METHOTREXATE SODIUM
     Indication: RHEUMATOID ARTHRITIS
     Dosage: 10 MG, WEEKLY(4 TABS 2.5 MG TAB 1/WEEK)
     Route: 048
     Dates: start: 20171108, end: 201712
  4. ALENDRONATE [Concomitant]
     Active Substance: ALENDRONATE SODIUM
     Indication: OSTEOPOROSIS
     Dosage: 70 MG, DAILY

REACTIONS (6)
  - Suicidal ideation [Recovered/Resolved]
  - Yellow skin [Unknown]
  - Dizziness [Unknown]
  - Alopecia [Recovered/Resolved]
  - Hyperhidrosis [Recovered/Resolved]
  - Hair colour changes [Unknown]

NARRATIVE: CASE EVENT DATE: 201712
